FAERS Safety Report 5819040-0 (Version None)
Quarter: 2008Q3

REPORT INFORMATION
  Report Type: 
  Country: None (occurrence: None)
  Receive Date: 20080723
  Receipt Date: 20080714
  Transmission Date: 20090109
  Serious: Yes (Other)
  Sender: FDA-Public Use
  Company Number: US-BAYER-200812224BCC

PATIENT
  Sex: Female

DRUGS (1)
  1. UNKNOWN RID LICE TREATMENT [Suspect]
     Indication: LICE INFESTATION
     Dates: start: 20080401

REACTIONS (2)
  - CONVULSION [None]
  - LICE INFESTATION [None]
